FAERS Safety Report 19700470 (Version 1)
Quarter: 2021Q3

REPORT INFORMATION
  Report Type: Spontaneous
  Country: US (occurrence: US)
  Receive Date: 20210813
  Receipt Date: 20210813
  Transmission Date: 20211014
  Serious: Yes (Life-Threatening, Hospitalization)
  Sender: FDA-Public Use
  Company Number: US-MYLANLABS-2021M1050329

PATIENT
  Age: 50 Year
  Sex: Male

DRUGS (4)
  1. PROCAINAMIDE HYDROCHLORIDE. [Suspect]
     Active Substance: PROCAINAMIDE HYDROCHLORIDE
     Indication: VENTRICULAR FIBRILLATION
     Route: 065
  2. AMIODARONE [Suspect]
     Active Substance: AMIODARONE
     Indication: VENTRICULAR FIBRILLATION
     Route: 042
  3. LIDOCAINE. [Suspect]
     Active Substance: LIDOCAINE
     Indication: VENTRICULAR FIBRILLATION
     Route: 065
  4. QUINIDINE [Suspect]
     Active Substance: QUINIDINE
     Indication: VENTRICULAR FIBRILLATION
     Route: 048

REACTIONS (2)
  - Off label use [Unknown]
  - Drug ineffective [Unknown]
